FAERS Safety Report 9089770 (Version 1)
Quarter: 2013Q1

REPORT INFORMATION
  Report Type: Report from Study
  Country: US (occurrence: US)
  Receive Date: 20130201
  Receipt Date: 20130201
  Transmission Date: 20140127
  Serious: No
  Sender: FDA-Public Use
  Company Number: US-ABBOTT-12P-163-1025051-00

PATIENT
  Age: 46 Year
  Sex: Female

DRUGS (17)
  1. HUMIRA [Suspect]
     Indication: PSORIASIS
     Dosage: INITIAL DOSE
     Dates: start: 20121218
  2. SINGULAIR [Concomitant]
     Indication: PRODUCT USED FOR UNKNOWN INDICATION
  3. ADVAIR [Concomitant]
     Indication: PRODUCT USED FOR UNKNOWN INDICATION
     Dosage: DISKUS, 50/250
     Route: 055
  4. ALBUTEROL [Concomitant]
     Indication: PRODUCT USED FOR UNKNOWN INDICATION
  5. CLARITIN [Concomitant]
     Indication: PRODUCT USED FOR UNKNOWN INDICATION
     Dosage: IN THE MORNING
  6. MULTIVITAMIN [Concomitant]
     Indication: PRODUCT USED FOR UNKNOWN INDICATION
  7. CALCIUM [Concomitant]
     Indication: PRODUCT USED FOR UNKNOWN INDICATION
  8. VIT D3 [Concomitant]
     Indication: PRODUCT USED FOR UNKNOWN INDICATION
     Dosage: DAILY
  9. MAGNESIUM [Concomitant]
     Indication: PRODUCT USED FOR UNKNOWN INDICATION
     Dosage: AT BEDTIME
  10. FISH OIL [Concomitant]
     Indication: PRODUCT USED FOR UNKNOWN INDICATION
  11. LIPITOR [Concomitant]
     Indication: PRODUCT USED FOR UNKNOWN INDICATION
     Dosage: DAILY
  12. ENJUVIA [Concomitant]
     Indication: HORMONE REPLACEMENT THERAPY
  13. WELLBUTRIN XL [Concomitant]
     Indication: PROPHYLAXIS
  14. AMBIEN [Concomitant]
     Indication: INSOMNIA
     Dosage: HAS NOT HAD TO USE
  15. XANAX [Concomitant]
     Indication: ANXIETY
     Dosage: HAS NOT HAD TO USE
  16. ATARAX [Concomitant]
     Indication: PRURITUS
     Dosage: HAS NOT HAD TO USE
  17. MOTRIN [Concomitant]
     Indication: PAIN

REACTIONS (3)
  - Dry eye [Not Recovered/Not Resolved]
  - Headache [Recovered/Resolved with Sequelae]
  - Dizziness [Not Recovered/Not Resolved]
